FAERS Safety Report 7113208-1 (Version None)
Quarter: 2010Q4

REPORT INFORMATION
  Report Type: 
  Country: None (occurrence: None)
  Receive Date: 20101119
  Receipt Date: 20091204
  Transmission Date: 20110411
  Serious: No
  Sender: FDA-Public Use
  Company Number: A0833636A

PATIENT
  Age: 53 Year
  Sex: Female

DRUGS (4)
  1. BUPROPION HYDROCHLORIDE [Suspect]
     Dosage: 150MG TWICE PER DAY
     Route: 048
     Dates: start: 20070201, end: 20070601
  2. HYDROCHLOROTHIAZIDE [Concomitant]
  3. BLACK COHOSH [Concomitant]
  4. VEGETABLE LAXATIVE [Concomitant]

REACTIONS (1)
  - DRUG SCREEN POSITIVE [None]
